FAERS Safety Report 13339900 (Version 2)
Quarter: 2017Q3

REPORT INFORMATION
  Report Type: Report from Study
  Country: JP (occurrence: JP)
  Receive Date: 20170315
  Receipt Date: 20170930
  Transmission Date: 20171127
  Serious: Yes (Hospitalization, Other)
  Sender: FDA-Public Use
  Company Number: JP-AMGEN-JPNSP2016144038

PATIENT
  Age: 66 Year
  Sex: Male

DRUGS (46)
  1. CARFILZOMIB [Suspect]
     Active Substance: CARFILZOMIB
     Dosage: 27 MG/M2 PER DAY, 10 MG AND 40 MG
     Route: 041
     Dates: start: 20161011, end: 20161011
  2. DECADRON [Concomitant]
     Active Substance: DEXAMETHASONE
     Dosage: 33 MG, UNK
     Dates: start: 20161104, end: 20161104
  3. DECADRON [Concomitant]
     Active Substance: DEXAMETHASONE
     Dosage: 16.50 MG, UNK
     Dates: start: 20161128, end: 20161128
  4. DECADRON [Concomitant]
     Active Substance: DEXAMETHASONE
     Dosage: 4 MG, UNK
     Dates: start: 20161021, end: 20161021
  5. CARFILZOMIB [Suspect]
     Active Substance: CARFILZOMIB
     Dosage: 27 MG/M2 PER DAY, 10 MG AND 40 MG
     Route: 041
     Dates: start: 20161104, end: 20161104
  6. REVLIMID [Suspect]
     Active Substance: LENALIDOMIDE
     Indication: PLASMA CELL MYELOMA
     Dosage: 15 MG, UNK
     Route: 048
     Dates: start: 20160926, end: 20160930
  7. REVLIMID [Suspect]
     Active Substance: LENALIDOMIDE
     Dosage: 5 MG, QOD
     Route: 048
     Dates: start: 20170116, end: 20170128
  8. REVLIMID [Suspect]
     Active Substance: LENALIDOMIDE
     Dosage: 5 MG, QOD
     Route: 048
     Dates: start: 20170213, end: 20170305
  9. DECADRON [Concomitant]
     Active Substance: DEXAMETHASONE
     Dosage: 16.50 MG, UNK
     Dates: start: 20161226, end: 20161226
  10. DECADRON [Concomitant]
     Active Substance: DEXAMETHASONE
     Dosage: 4 MG, UNK
     Dates: start: 20161227, end: 20161227
  11. DECADRON [Concomitant]
     Active Substance: DEXAMETHASONE
     Dosage: 4 MG, UNK
     Dates: start: 20170124, end: 20170124
  12. CARFILZOMIB [Suspect]
     Active Substance: CARFILZOMIB
     Dosage: 20 MG/M2 PER DAY, 10 MG AND 40 MG
     Route: 041
     Dates: start: 20161020, end: 20161021
  13. CARFILZOMIB [Suspect]
     Active Substance: CARFILZOMIB
     Dosage: 20 MG/M2 PER DAY, 10 MG AND 40 MG
     Route: 041
     Dates: start: 20161128, end: 20161129
  14. CARFILZOMIB [Suspect]
     Active Substance: CARFILZOMIB
     Dosage: 20 MG/M2 PER DAY, 10 MG AND 40 MG
     Route: 041
     Dates: start: 20170123, end: 20170124
  15. DECADRON [Concomitant]
     Active Substance: DEXAMETHASONE
     Dosage: 33 MG, UNK
     Dates: start: 20160926, end: 20160926
  16. DECADRON [Concomitant]
     Active Substance: DEXAMETHASONE
     Dosage: 3.30 MG, UNK
     Dates: start: 20161004, end: 20161004
  17. VALTREX [Concomitant]
     Active Substance: VALACYCLOVIR HYDROCHLORIDE
     Dosage: UNK
     Dates: end: 20161011
  18. CARFILZOMIB [Suspect]
     Active Substance: CARFILZOMIB
     Dosage: 20 MG/M2 PER DAY, 10 MG AND 40 MG
     Route: 041
     Dates: start: 20161027, end: 20161028
  19. CARFILZOMIB [Suspect]
     Active Substance: CARFILZOMIB
     Dosage: 20 MG/M2 PER DAY, 10 MG AND 40 MG
     Route: 041
     Dates: start: 20161212, end: 20161213
  20. CARFILZOMIB [Suspect]
     Active Substance: CARFILZOMIB
     Dosage: 20 MG/M2 PER DAY, 10 MG AND 40 MG
     Route: 041
     Dates: start: 20170220, end: 20170221
  21. REVLIMID [Suspect]
     Active Substance: LENALIDOMIDE
     Dosage: 5 MG, QOD
     Route: 048
     Dates: start: 20161226, end: 20170111
  22. DECADRON [Concomitant]
     Active Substance: DEXAMETHASONE
     Dosage: 4 MG, UNK
     Dates: start: 20161206, end: 20161206
  23. DECADRON [Concomitant]
     Active Substance: DEXAMETHASONE
     Dosage: 4 MG, UNK
     Dates: start: 20161213, end: 20161213
  24. DECADRON [Concomitant]
     Active Substance: DEXAMETHASONE
     Dosage: 3.30 MG, UNK
     Dates: start: 20170116, end: 20170116
  25. DECADRON [Concomitant]
     Active Substance: DEXAMETHASONE
     Dosage: 3.30 MG, UNK
     Dates: start: 20170123, end: 20170123
  26. DECADRON [Concomitant]
     Active Substance: DEXAMETHASONE
     Dosage: 3.30 MG, UNK
     Dates: start: 20170213, end: 20170213
  27. DECADRON [Concomitant]
     Active Substance: DEXAMETHASONE
     Dosage: 3.30 MG, UNK
     Dates: start: 20160927, end: 20160927
  28. DECADRON [Concomitant]
     Active Substance: DEXAMETHASONE
     Dosage: 33 MG, UNK
     Dates: start: 20161003, end: 20161003
  29. DECADRON [Concomitant]
     Active Substance: DEXAMETHASONE
     Dosage: 16.50 MG, UNK
     Dates: start: 20161205, end: 20161205
  30. CARFILZOMIB [Suspect]
     Active Substance: CARFILZOMIB
     Dosage: 20 MG/M2 PER DAY, 10 MG AND 40 MG
     Route: 041
     Dates: start: 20161205, end: 20161206
  31. CARFILZOMIB [Suspect]
     Active Substance: CARFILZOMIB
     Dosage: 20 MG/M2 PER DAY, 10 MG AND 40 MG
     Route: 041
     Dates: start: 20170116, end: 20170117
  32. DECADRON [Concomitant]
     Active Substance: DEXAMETHASONE
     Dosage: 16.50 MG, UNK
     Dates: start: 20161027, end: 20161027
  33. DECADRON [Concomitant]
     Active Substance: DEXAMETHASONE
     Dosage: 16.50 MG, UNK
     Dates: start: 20161212, end: 20161212
  34. DECADRON [Concomitant]
     Active Substance: DEXAMETHASONE
     Dosage: 4 MG, UNK
     Dates: start: 20170117, end: 20170117
  35. CARFILZOMIB [Suspect]
     Active Substance: CARFILZOMIB
     Indication: PLASMA CELL MYELOMA
     Dosage: 20 MG/M2 PER DAY, 10 MG AND 40 MG
     Route: 041
     Dates: start: 20160926, end: 20160927
  36. CARFILZOMIB [Suspect]
     Active Substance: CARFILZOMIB
     Dosage: 27 MG/M2 PER DAY, 10 MG AND 40 MG
     Route: 041
     Dates: start: 20161003, end: 20161004
  37. CARFILZOMIB [Suspect]
     Active Substance: CARFILZOMIB
     Dosage: 20 MG/M2 PER DAY, 10 MG AND 40 MG
     Route: 041
     Dates: start: 20161226, end: 20161227
  38. CARFILZOMIB [Suspect]
     Active Substance: CARFILZOMIB
     Dosage: 20 MG/M2 PER DAY, 10 MG AND 40 MG
     Route: 041
     Dates: start: 20170227, end: 20170228
  39. REVLIMID [Suspect]
     Active Substance: LENALIDOMIDE
     Dosage: 5 MG, UNK
     Route: 048
     Dates: start: 20161001, end: 20161011
  40. DECADRON [Concomitant]
     Active Substance: DEXAMETHASONE
     Dosage: 3.30 MG, UNK
     Dates: start: 20161011, end: 20161011
  41. DECADRON [Concomitant]
     Active Substance: DEXAMETHASONE
     Dosage: 4 MG, UNK
     Dates: start: 20161028, end: 20161028
  42. DECADRON [Concomitant]
     Active Substance: DEXAMETHASONE
     Dosage: 3.30 MG, UNK
     Dates: start: 20170130, end: 20170130
  43. CARFILZOMIB [Suspect]
     Active Substance: CARFILZOMIB
     Dosage: 20 MG/M2 PER DAY, 10 MG AND 40 MG
     Route: 041
     Dates: start: 20170130, end: 20170131
  44. CARFILZOMIB [Suspect]
     Active Substance: CARFILZOMIB
     Dosage: 20 MG/M2 PER DAY, 10 MG AND 40 MG
     Route: 041
     Dates: start: 20170213, end: 20170214
  45. DECADRON [Concomitant]
     Active Substance: DEXAMETHASONE
     Dosage: 16.50 MG, UNK
     Dates: start: 20161020, end: 20161020
  46. DECADRON [Concomitant]
     Active Substance: DEXAMETHASONE
     Dosage: 4 MG, UNK
     Dates: start: 20161129, end: 20161129

REACTIONS (2)
  - Renal disorder [Not Recovered/Not Resolved]
  - Pneumonia [Recovered/Resolved]

NARRATIVE: CASE EVENT DATE: 20160930
